FAERS Safety Report 6127760-6 (Version None)
Quarter: 2009Q1

REPORT INFORMATION
  Report Type: 
  Country: None (occurrence: None)
  Receive Date: 20090323
  Receipt Date: 20090313
  Transmission Date: 20090719
  Serious: Yes (Hospitalization)
  Sender: FDA-Public Use
  Company Number: FR-AMGEN-UK286804

PATIENT
  Sex: Female

DRUGS (7)
  1. PANITUMUMAB [Suspect]
     Indication: COLORECTAL CANCER
     Route: 042
     Dates: start: 20080604, end: 20080604
  2. FLUOROURACIL [Suspect]
  3. IRINOTECAN HCL [Concomitant]
  4. LEUCOVORIN CALCIUM [Concomitant]
  5. TRANXENE [Concomitant]
     Route: 048
     Dates: start: 20080605, end: 20080605
  6. INNOHEP [Concomitant]
     Route: 058
     Dates: start: 20080605, end: 20080621
  7. PARACETAMOL [Concomitant]
     Route: 048
     Dates: start: 20080605, end: 20080701

REACTIONS (1)
  - VASCULITIS CEREBRAL [None]
